FAERS Safety Report 25549966 (Version 1)
Quarter: 2025Q3

REPORT INFORMATION
  Report Type: Spontaneous
  Country: US (occurrence: US)
  Receive Date: 20250714
  Receipt Date: 20250714
  Transmission Date: 20251021
  Serious: Yes (Other)
  Sender: NOVO NORDISK
  Company Number: US-NOVOPROD-1392227

PATIENT
  Sex: Female

DRUGS (1)
  1. SEMAGLUTIDE [Suspect]
     Active Substance: SEMAGLUTIDE
     Indication: Product used for unknown indication

REACTIONS (7)
  - Impaired gastric emptying [Unknown]
  - Hypophagia [Unknown]
  - Muscle atrophy [Unknown]
  - Menstruation irregular [Unknown]
  - Weight loss poor [Unknown]
  - Dyspepsia [Unknown]
  - Counterfeit product administered [Unknown]
